FAERS Safety Report 6494688-1 (Version None)
Quarter: 2009Q4

REPORT INFORMATION
  Report Type: 
  Country: None (occurrence: None)
  Receive Date: 20091214
  Receipt Date: 20090313
  Transmission Date: 20100525
  Serious: Yes (Other)
  Sender: FDA-Public Use
  Company Number: US-BRISTOL-MYERS SQUIBB COMPANY-14543870

PATIENT
  Age: 55 Year
  Sex: Male

DRUGS (3)
  1. ABILIFY [Suspect]
  2. LITHIUM [Suspect]
  3. SEROQUEL [Suspect]

REACTIONS (1)
  - ELECTROCARDIOGRAM QT PROLONGED [None]
